FAERS Safety Report 9689517 (Version 1)
Quarter: 2013Q4

REPORT INFORMATION
  Report Type: Spontaneous
  Country: US (occurrence: US)
  Receive Date: 20131115
  Receipt Date: 20131115
  Transmission Date: 20140711
  Serious: Yes (Death)
  Sender: FDA-Public Use
  Company Number: US-ROCHE-1302144

PATIENT
  Age: 75 Year
  Sex: Female

DRUGS (5)
  1. AVASTIN [Suspect]
     Indication: HEPATIC CANCER
     Route: 042
  2. AVASTIN [Suspect]
     Indication: LUNG NEOPLASM MALIGNANT
  3. METOCLOPRAMIDE [Concomitant]
     Route: 065
  4. CLONIDINE [Concomitant]
     Route: 065
  5. NACL .9% [Concomitant]
     Route: 065

REACTIONS (5)
  - Death [Fatal]
  - Fatigue [Recovering/Resolving]
  - Somnolence [Unknown]
  - Asthenia [Unknown]
  - Off label use [Unknown]
